FAERS Safety Report 23715997 (Version 2)
Quarter: 2024Q2

REPORT INFORMATION
  Report Type: Spontaneous
  Country: CN (occurrence: CN)
  Receive Date: 20240408
  Receipt Date: 20240417
  Transmission Date: 20240716
  Serious: Yes (Other)
  Sender: FDA-Public Use
  Company Number: CN-NOVOPROD-1198800

PATIENT
  Age: 66 Year
  Sex: Female
  Weight: 60 kg

DRUGS (1)
  1. NOVOLIN R [Suspect]
     Active Substance: INSULIN HUMAN
     Indication: Type 2 diabetes mellitus
     Dosage: 38 IU, QD (20 U IN THE MORNING AND 18 U IN THE EVENING)
     Dates: start: 1990

REACTIONS (2)
  - Blindness [Recovered/Resolved]
  - Surgical failure [Unknown]

NARRATIVE: CASE EVENT DATE: 20081209
